FAERS Safety Report 16504454 (Version 3)
Quarter: 2019Q3

REPORT INFORMATION
  Report Type: Spontaneous
  Country: US (occurrence: US)
  Receive Date: 20190701
  Receipt Date: 20190822
  Transmission Date: 20191004
  Serious: No
  Sender: FDA-Public Use
  Company Number: US-PFIZER INC-2019282026

PATIENT
  Age: 53 Year
  Sex: Female

DRUGS (21)
  1. DOCETAXEL SANOFI-AVENTIS [Suspect]
     Active Substance: DOCETAXEL
     Indication: BREAST CANCER METASTATIC
     Dosage: 182 MG, CYCLIC (4 CYCLES, EVERY THREE WEEKS)
     Dates: start: 20140815, end: 20141128
  2. AMBIEN [Concomitant]
     Active Substance: ZOLPIDEM TARTRATE
     Dosage: UNK
     Dates: start: 20110101, end: 20141231
  3. PARAPLATIN [Concomitant]
     Active Substance: CARBOPLATIN
     Indication: CHEMOTHERAPY
     Dosage: UNK
  4. PERCOCET [Concomitant]
     Active Substance: ACETAMINOPHEN\OXYCODONE HYDROCHLORIDE
     Dosage: UNK
     Dates: start: 20110101, end: 20141231
  5. FLEXERIL [Concomitant]
     Active Substance: CYCLOBENZAPRINE HYDROCHLORIDE
     Dosage: UNK
     Dates: start: 20110101, end: 20141231
  6. DOCEFREZ [Suspect]
     Active Substance: DOCETAXEL ANHYDROUS
     Indication: BREAST CANCER METASTATIC
     Dosage: 182 MG, CYCLIC (4 CYCLES, EVERY THREE WEEKS)
     Dates: start: 20140815, end: 20141128
  7. DOCETAXEL NORTHSTAR [Suspect]
     Active Substance: DOCETAXEL
     Indication: BREAST CANCER METASTATIC
     Dosage: 182 MG, CYCLIC (4 CYCLES, EVERY THREE WEEKS)
     Dates: start: 20140815, end: 20141128
  8. DOCETAXEL. [Suspect]
     Active Substance: DOCETAXEL
     Indication: BREAST CANCER METASTATIC
     Dosage: 182 MG, CYCLIC (4 CYCLES, EVERY THREE WEEKS)
     Dates: start: 20140815, end: 20141128
  9. DOCETAXEL TEVA [Suspect]
     Active Substance: DOCETAXEL
     Indication: BREAST CANCER METASTATIC
     Dosage: 182 MG, CYCLIC (4 CYCLES, EVERY THREE WEEKS)
     Dates: start: 20140815, end: 20141128
  10. DOCETAXEL SANDOZ [Suspect]
     Active Substance: DOCETAXEL
     Indication: BREAST CANCER METASTATIC
     Dosage: 182 MG, CYCLIC (4 CYCLES, EVERY THREE WEEKS)
     Dates: start: 20140815, end: 20141128
  11. DOCETAXEL EAGLE [Suspect]
     Active Substance: DOCETAXEL
     Indication: BREAST CANCER METASTATIC
     Dosage: 182 MG, CYCLIC (4 CYCLES, EVERY THREE WEEKS)
     Dates: start: 20140815, end: 20141128
  12. DOCETAXEL SAGENT [Suspect]
     Active Substance: DOCETAXEL
     Indication: BREAST CANCER METASTATIC
     Dosage: 182 MG, CYCLIC (4 CYCLES, EVERY THREE WEEKS)
     Dates: start: 20140815, end: 20141128
  13. ALBUTEROL. [Concomitant]
     Active Substance: ALBUTEROL
     Dosage: UNK
     Dates: start: 20110101, end: 20141231
  14. DOCETAXEL. [Suspect]
     Active Substance: DOCETAXEL
     Indication: BREAST CANCER METASTATIC
     Dosage: 182 MG, CYCLIC (4 CYCLES, EVERY THREE WEEKS)
     Dates: start: 20140815, end: 20141128
  15. DOCETAXEL DR. REDDY^S [Suspect]
     Active Substance: DOCETAXEL
     Indication: BREAST CANCER METASTATIC
     Dosage: 182 MG, CYCLIC (4 CYCLES, EVERY THREE WEEKS)
     Dates: start: 20140815, end: 20141128
  16. HERCEPTIN [Concomitant]
     Active Substance: TRASTUZUMAB
     Indication: CHEMOTHERAPY
     Dosage: UNK
  17. TRAMADOL. [Concomitant]
     Active Substance: TRAMADOL
     Dosage: UNK
     Dates: start: 20110101, end: 20141231
  18. DOCETAXEL ACTAVIS [Suspect]
     Active Substance: DOCETAXEL
     Indication: BREAST CANCER METASTATIC
     Dosage: 182 MG, CYCLIC (4 CYCLES, EVERY THREE WEEKS)
     Dates: start: 20140815, end: 20141128
  19. DOCETAXEL ACCORD [Suspect]
     Active Substance: DOCETAXEL
     Indication: BREAST CANCER METASTATIC
     Dosage: 182 MG, CYCLIC (4 CYCLES, EVERY THREE WEEKS)
     Dates: start: 20140815, end: 20141128
  20. LOMOTIL [Concomitant]
     Active Substance: ATROPINE SULFATE\DIPHENOXYLATE HYDROCHLORIDE
     Dosage: UNK
     Dates: start: 20110101, end: 20141231
  21. IMODIUM [Concomitant]
     Active Substance: LOPERAMIDE HYDROCHLORIDE
     Dosage: UNK
     Dates: start: 20110101, end: 20141231

REACTIONS (5)
  - Alopecia [Not Recovered/Not Resolved]
  - Hair disorder [Not Recovered/Not Resolved]
  - Hair colour changes [Not Recovered/Not Resolved]
  - Hair texture abnormal [Not Recovered/Not Resolved]
  - Madarosis [Not Recovered/Not Resolved]

NARRATIVE: CASE EVENT DATE: 20150528
